FAERS Safety Report 6135554-0 (Version None)
Quarter: 2009Q1

REPORT INFORMATION
  Report Type: 
  Country: None (occurrence: None)
  Receive Date: 20090327
  Receipt Date: 20090323
  Transmission Date: 20090719
  Serious: Yes (Hospitalization, Other)
  Sender: FDA-Public Use
  Company Number: PHEH2009US02920

PATIENT
  Sex: Female

DRUGS (1)
  1. DIOVAN [Suspect]
     Indication: HYPERTENSION
     Dosage: UNK
     Dates: end: 20090101

REACTIONS (3)
  - BLADDER DISORDER [None]
  - INTESTINAL CYST [None]
  - SURGERY [None]
